FAERS Safety Report 19313078 (Version 4)
Quarter: 2022Q3

REPORT INFORMATION
  Report Type: Spontaneous
  Country: DE (occurrence: DE)
  Receive Date: 20210527
  Receipt Date: 20220923
  Transmission Date: 20221026
  Serious: Yes (Hospitalization, Other)
  Sender: FDA-Public Use
  Company Number: DE-SA-2021SA157897

PATIENT
  Age: 52 Year
  Sex: Male

DRUGS (6)
  1. ARIPIPRAZOLE [Suspect]
     Active Substance: ARIPIPRAZOLE
     Indication: Schizophrenia
     Dosage: 15 MILLIGRAM, ONCE A DAY
     Route: 065
  2. CARIPRAZINE [Suspect]
     Active Substance: CARIPRAZINE
     Indication: Schizophrenia
     Dosage: 4.5 MILLIGRAM, ONCE A DAY
     Route: 065
  3. CARIPRAZINE [Suspect]
     Active Substance: CARIPRAZINE
     Dosage: 3 MILLIGRAM, ONCE A DAY
     Route: 065
  4. CARIPRAZINE [Suspect]
     Active Substance: CARIPRAZINE
     Dosage: 1.5 MILLIGRAM, ONCE A DAY
     Route: 065
  5. HALOPERIDOL [Suspect]
     Active Substance: HALOPERIDOL
     Indication: Schizophrenia
     Dosage: 5 MILLIGRAM, ONCE A DAY
     Route: 065
  6. PIPAMPERONE [Concomitant]
     Active Substance: PIPAMPERONE
     Indication: Sedation
     Dosage: 40 MILLIGRAM, ONCE A DAY
     Route: 065

REACTIONS (10)
  - Insomnia [Recovered/Resolved]
  - Behaviour disorder [Recovered/Resolved]
  - Memory impairment [Recovered/Resolved]
  - Rebound effect [Recovered/Resolved]
  - Therapy cessation [Recovered/Resolved]
  - Psychotic symptom [Recovered/Resolved]
  - Acute psychosis [Recovered/Resolved]
  - Delusion [Recovered/Resolved]
  - Schizophrenia [Unknown]
  - Withdrawal syndrome [Unknown]
